FAERS Safety Report 6495140-X (Version None)
Quarter: 2009Q4

REPORT INFORMATION
  Report Type: 
  Country: None (occurrence: None)
  Receive Date: 20091214
  Receipt Date: 20090513
  Transmission Date: 20100525
  Serious: Yes (Other)
  Sender: FDA-Public Use
  Company Number: US-BRISTOL-MYERS SQUIBB COMPANY-14613665

PATIENT
  Age: 4 Decade
  Sex: Female

DRUGS (4)
  1. ABILIFY [Suspect]
     Indication: BIPOLAR DISORDER
     Dosage: 30MG;SWITCHED TO DULOXETINE HCL,REDCD TO 20MG;THEN 10MG;STARTED WITH THIS NP IN JAN09
  2. CYMBALTA [Suspect]
  3. ZOLOFT [Suspect]
  4. BENADRYL [Concomitant]
     Dosage: 50MG QHS

REACTIONS (2)
  - AKATHISIA [None]
  - CONVULSION [None]
